FAERS Safety Report 4684916-7 (Version None)
Quarter: 2005Q2

REPORT INFORMATION
  Report Type: 
  Country: None (occurrence: None)
  Receive Date: 20050606
  Receipt Date: 20050606
  Transmission Date: 20051028
  Serious: Yes (Hospitalization)
  Sender: FDA-Public Use
  Company Number: None

PATIENT
  Age: 65 Year

DRUGS (12)
  1. COUMADIN [Suspect]
     Indication: CORONARY ARTERY DISEASE
  2. CORDARONE [Concomitant]
  3. CELEXA [Concomitant]
  4. CATAPRES [Concomitant]
  5. PLAVIX [Concomitant]
  6. CARDIZEM CD [Concomitant]
  7. . [Concomitant]
  8. IMDUR [Concomitant]
  9. TOPROL-XL [Concomitant]
  10. AMBIEN [Concomitant]
  11. ALTACE [Concomitant]
  12. ZANTAC [Concomitant]

REACTIONS (2)
  - BLOOD URINE PRESENT [None]
  - INTERNATIONAL NORMALISED RATIO INCREASED [None]
